FAERS Safety Report 9414677 (Version 1)
Quarter: 2013Q3

REPORT INFORMATION
  Report Type: Spontaneous
  Country: US (occurrence: None)
  Receive Date: 20130717
  Receipt Date: 20130717
  Transmission Date: 20140515
  Serious: Yes (Hospitalization, Other)
  Sender: FDA-Public Use
  Company Number: 2013-2489

PATIENT
  Age: 50 Year
  Sex: Female
  Weight: 107 kg

DRUGS (12)
  1. SOMATULINE DEPOT INJECTION (60MG) (SOMATULINE) [Suspect]
     Indication: ACROMEGALY
     Dosage: 60 MG (60 MG, 1 IN 28 D), SUBCUTANEOUS
     Route: 058
     Dates: start: 20120822
  2. COREG CR (CARVEDILOL) [Concomitant]
  3. LEVOTHROXINE (LEVOTHROXINE) [Concomitant]
  4. NORVASC (AMLODIPINE) [Concomitant]
  5. FOLIC ACID (FOLIC ACID) [Concomitant]
  6. BENICAR HCT (BENICAR HCT) [Concomitant]
  7. PREDNISONE (PREDNISONE) [Concomitant]
  8. CALCIUM [Concomitant]
  9. MAGNESIUM (MAGNESIUM) [Concomitant]
  10. MULTIVITAMIN (MULTIVTIAMIN) /00831701/ [Concomitant]
  11. VITAMIN D3 (COLECALCIFEROL) [Concomitant]
  12. METHOTREXATE (METHOTREXATE) [Concomitant]

REACTIONS (12)
  - Drug hypersensitivity [None]
  - Vision blurred [None]
  - Tremor [None]
  - Localised infection [None]
  - Headache [None]
  - Dizziness [None]
  - Injection site pain [None]
  - Blood glucose increased [None]
  - Gallbladder disorder [None]
  - Pain [None]
  - Angioedema [None]
  - Sensation of pressure [None]
